APPROVED DRUG PRODUCT: FLUTICASONE PROPIONATE
Active Ingredient: FLUTICASONE PROPIONATE
Strength: 0.05MG/SPRAY
Dosage Form/Route: SPRAY, METERED;NASAL
Application: A208024 | Product #001
Applicant: HIKMA PHARMACEUTICALS USA INC
Approved: Apr 17, 2019 | RLD: No | RS: No | Type: DISCN